FAERS Safety Report 8988324 (Version 1)
Quarter: 2012Q4

REPORT INFORMATION
  Report Type: Spontaneous
  Country: US (occurrence: None)
  Receive Date: 20121218
  Receipt Date: 20121218
  Transmission Date: 20130627
  Serious: Yes (Hospitalization)
  Sender: FDA-Public Use
  Company Number: 2012P1066643

PATIENT
  Age: 51 Year
  Sex: Female

DRUGS (2)
  1. DURAMORPH [Suspect]
     Indication: PAIN
  2. FENTANYL [Suspect]
     Indication: PAIN

REACTIONS (2)
  - Device use error [None]
  - Withdrawal syndrome [None]
